FAERS Safety Report 3777439 (Version 2)
Quarter: 2020Q3

REPORT INFORMATION
  Report Type: Spontaneous
  Country: GB (occurrence: GB)
  Receive Date: 20020326
  Receipt Date: 20200730
  Transmission Date: 20201103
  Serious: Yes (Disabling, Other)
  Sender: FDA-Public Use
  Company Number: PHBS2002GB03774

PATIENT
  Age: 57 Year
  Sex: Female

DRUGS (7)
  1. PHENOBARBITONE [Concomitant]
     Active Substance: PHENOBARBITAL
     Indication: EPILEPSY
  2. LEVETIRACETAM. [Interacting]
     Active Substance: LEVETIRACETAM
     Indication: FOCAL DYSCOGNITIVE SEIZURES
     Dosage: 1500 MG (MANE)
     Route: 065
  3. CARBAMAZEPINE. [Suspect]
     Active Substance: CARBAMAZEPINE
     Indication: FOCAL DYSCOGNITIVE SEIZURES
     Dosage: 600 MG, QD
     Route: 065
  4. LEVETIRACETAM. [Interacting]
     Active Substance: LEVETIRACETAM
     Indication: SEIZURE
     Dosage: 500 MG, QD
     Route: 065
  5. LEVETIRACETAM. [Interacting]
     Active Substance: LEVETIRACETAM
     Dosage: 1000 MG (NOCTE)
     Route: 065
  6. PHENOBARBITONE [Concomitant]
     Active Substance: PHENOBARBITAL
     Indication: FOCAL DYSCOGNITIVE SEIZURES
     Dosage: 150 MG, QD
     Route: 065
  7. CARBAMAZEPINE. [Interacting]
     Active Substance: CARBAMAZEPINE
     Indication: EPILEPSY
     Dosage: 400 MG
     Route: 065

REACTIONS (4)
  - Ataxia [Recovered/Resolved]
  - Toxicity to various agents [Recovered/Resolved]
  - Nystagmus [Recovered/Resolved]
  - Drug interaction [Unknown]
